FAERS Safety Report 13373128 (Version 1)
Quarter: 2017Q1

REPORT INFORMATION
  Report Type: Spontaneous
  Country: US (occurrence: US)
  Receive Date: 20170327
  Receipt Date: 20170327
  Transmission Date: 20170429
  Serious: Yes (Other)
  Sender: FDA-Public Use
  Company Number: US-LPDUSPRD-20170306

PATIENT
  Age: 30 Year
  Sex: Female

DRUGS (9)
  1. GLYCOPYRROLATE INJECTION, USP (4601-25) [Suspect]
     Active Substance: GLYCOPYRROLATE
     Dosage: 0.005 MG/KG
  2. ISOFLURANE. [Suspect]
     Active Substance: ISOFLURANE
     Dosage: 0.8 MAINT. CONCENTRATION
  3. EPHEDRINE. [Suspect]
     Active Substance: EPHEDRINE
     Dosage: 5 MG THEN AN ADDITIONAL 10 MG
  4. FENTANYL. [Suspect]
     Active Substance: FENTANYL
     Dosage: 2 MCG/KG
  5. NEOSTIGMINE METHYLSULFATE INJECTION, USP (0033-10) [Suspect]
     Active Substance: NEOSTIGMINE METHYLSULFATE
     Dosage: 0.05 MG/KG
  6. NITROGLYCERIN INJECTION, USP (4810-10) [Suspect]
     Active Substance: NITROGLYCERIN
     Dosage: 100 MG
  7. VECURRONIUM BROMIDE [Suspect]
     Active Substance: VECURONIUM BROMIDE
     Dosage: 0.1 MG/KG
  8. ETOMIDATE. [Suspect]
     Active Substance: ETOMIDATE
     Dosage: 0.2 MG/KG
  9. TERBUTALINE [Suspect]
     Active Substance: TERBUTALINE
     Dosage: DOSE UNKNOWN

REACTIONS (3)
  - Pulmonary oedema [Unknown]
  - Hypertension [Unknown]
  - Exposure during pregnancy [Recovered/Resolved]
